FAERS Safety Report 9254288 (Version 1)
Quarter: 2013Q1

REPORT INFORMATION
  Report Type: Spontaneous
  Country: US (occurrence: None)
  Receive Date: 20121203
  Receipt Date: 20121203
  Transmission Date: 20140127
  Serious: Yes (Other)
  Sender: FDA-Public Use
  Company Number: 1209USA002319

PATIENT
  Age: 60 Year
  Sex: Female

DRUGS (7)
  1. JANUMET XR [Suspect]
     Indication: DIABETES MELLITUS
     Route: 048
     Dates: start: 20120724, end: 20120821
  2. LOTREL (AMLODIPINE BESYLATE, BENAZEPRIL HYDROCHLORIDE) [Concomitant]
  3. SIMVASTATIN TABLET, USP (SIMVASTATIN) [Concomitant]
  4. METOPROLOL (METOPROLOL) [Concomitant]
  5. MAXIDE (HYDROCHLOROTHIAZIDE, TRIAMTERENE) [Concomitant]
  6. NEXIUM (ESOMEPRAZOLE MAGNESIUM) [Concomitant]
  7. NOVOLOG MIX 70/30 (INSULIN ASPART, BIPHASIC ISOPHANE [INJECTION]) [Concomitant]

REACTIONS (1)
  - Pancreatitis [None]
